FAERS Safety Report 6888297-X (Version None)
Quarter: 2010Q3

REPORT INFORMATION
  Report Type: 
  Country: None (occurrence: None)
  Receive Date: 20100730
  Receipt Date: 20100726
  Transmission Date: 20110219
  Serious: Yes (Hospitalization, Other)
  Sender: FDA-Public Use
  Company Number: FR-BRISTOL-MYERS SQUIBB COMPANY-15211188

PATIENT
  Age: 19 Year
  Sex: Male

DRUGS (2)
  1. HICONCIL [Suspect]
     Route: 048
     Dates: start: 19810301
  2. PAXELADINE [Concomitant]
     Dates: start: 19810301

REACTIONS (3)
  - SICCA SYNDROME [None]
  - SYMBLEPHARON [None]
  - TOXIC EPIDERMAL NECROLYSIS [None]
